FAERS Safety Report 10144274 (Version 6)
Quarter: 2014Q2

REPORT INFORMATION
  Report Type: Report from Study
  Country: US (occurrence: US)
  Receive Date: 20140430
  Receipt Date: 20140612
  Transmission Date: 20141212
  Serious: Yes (Hospitalization)
  Sender: FDA-Public Use
  Company Number: US-NOVOPROD-395582

PATIENT
  Age: 64 Year
  Sex: Male
  Weight: 138.2 kg

DRUGS (3)
  1. LIRAGLUTIDE FLEXPEN [Suspect]
     Indication: OBESITY
     Dosage: 3 MG, QD
     Route: 058
     Dates: start: 20110802, end: 20131214
  2. LIRAGLUTIDE FLEXPEN [Suspect]
     Dosage: 3 MG, QD
     Route: 058
     Dates: start: 20131219
  3. ATORVASTATIN [Concomitant]
     Indication: SYNCOPE
     Dosage: 40.0 MG, QD
     Dates: start: 20131213, end: 20140424

REACTIONS (5)
  - Ventricular tachycardia [Not Recovered/Not Resolved]
  - Angina unstable [Recovered/Resolved]
  - Hypovolaemia [Recovered/Resolved]
  - Syncope [Recovered/Resolved]
  - Blood creatine phosphokinase increased [Recovered/Resolved]
